FAERS Safety Report 18961186 (Version 2)
Quarter: 2021Q1

REPORT INFORMATION
  Report Type: Spontaneous
  Country: JP (occurrence: JP)
  Receive Date: 20210303
  Receipt Date: 20210329
  Transmission Date: 20210420
  Serious: Yes (Death, Other)
  Sender: FDA-Public Use
  Company Number: JP-009507513-2102JPN002285J

PATIENT
  Age: 64 Year
  Sex: Male

DRUGS (2)
  1. KEYTRUDA [Suspect]
     Active Substance: PEMBROLIZUMAB
     Indication: RENAL CELL CARCINOMA
     Dosage: 200 MILLIGRAM, Q3W
     Route: 041
     Dates: start: 20200117, end: 2020
  2. AXITINIB [Concomitant]
     Active Substance: AXITINIB
     Dosage: UNK
     Route: 065
     Dates: start: 2020, end: 2020

REACTIONS (2)
  - Malignant neoplasm progression [Fatal]
  - Gastrointestinal haemorrhage [Unknown]

NARRATIVE: CASE EVENT DATE: 2020
